FAERS Safety Report 4646275-5 (Version None)
Quarter: 2005Q2

REPORT INFORMATION
  Report Type: 
  Country: None (occurrence: None)
  Receive Date: 20050427
  Receipt Date: 20041110
  Transmission Date: 20051028
  Serious: Yes (Hospitalization)
  Sender: FDA-Public Use
  Company Number: FR-MERCK-0411USA02197

PATIENT
  Age: 83 Year
  Sex: Male

DRUGS (9)
  1. ZOCOR [Suspect]
     Route: 048
     Dates: start: 19940101, end: 20040929
  2. TORENTAL [Suspect]
     Route: 048
     Dates: start: 19890101, end: 20041001
  3. SINGULAIR [Concomitant]
     Route: 048
     Dates: start: 20020101, end: 20040930
  4. KARDEGIC [Concomitant]
     Route: 048
  5. ISKEDYL [Concomitant]
     Route: 048
  6. PROZAC [Concomitant]
     Route: 048
  7. ATHYMIL [Concomitant]
     Route: 048
  8. FLIXOTIDE [Concomitant]
     Route: 055
  9. FORADIL [Concomitant]
     Route: 055

REACTIONS (3)
  - DRUG INEFFECTIVE [None]
  - EJECTION FRACTION DECREASED [None]
  - PNEUMONITIS [None]
